FAERS Safety Report 8570690-0 (Version None)
Quarter: 2012Q3

REPORT INFORMATION
  Report Type: 
  Country: None (occurrence: None)
  Receive Date: 20120805
  Receipt Date: 20120719
  Transmission Date: 20120928
  Serious: No
  Sender: FDA-Public Use
  Company Number: US-009507513-2012SP036520

PATIENT

DRUGS (7)
  1. CLARITIN [Suspect]
     Indication: ALLERGIC SINUSITIS
     Dosage: 10 MG, QD
     Route: 048
     Dates: start: 20120430
  2. CINNAMON [Concomitant]
     Indication: BLOOD GLUCOSE
     Dosage: 4 DF, QD
  3. CYANOCOBALAMIN [Concomitant]
     Indication: PRODUCT USED FOR UNKNOWN INDICATION
     Dosage: UNK, UNKNOWN
  4. OLANZAPINE [Concomitant]
     Indication: SCHIZOPHRENIA
     Dosage: 20 MG, UNKNOWN
  5. FOLIC ACID [Concomitant]
     Indication: WHITE BLOOD CELL COUNT DECREASED
     Dosage: 3 DF, QD
  6. GABAPENTIN [Concomitant]
     Indication: SLEEP DISORDER
     Dosage: 800 MG, UNKNOWN
  7. MIRTAZAPINE [Concomitant]
     Indication: SLEEP DISORDER
     Dosage: 15 MG, UNKNOWN

REACTIONS (1)
  - DRUG INEFFECTIVE [None]
